FAERS Safety Report 4740867-0 (Version None)
Quarter: 2005Q3

REPORT INFORMATION
  Report Type: 
  Country: None (occurrence: None)
  Receive Date: 20050810
  Receipt Date: 20050126
  Transmission Date: 20060218
  Serious: No
  Sender: FDA-Public Use
  Company Number: US-GLAXOSMITHKLINE-A0542306A

PATIENT
  Age: 76 Year
  Sex: Female

DRUGS (4)
  1. TAGAMET HB 200 [Suspect]
  2. TOPROL-XL [Concomitant]
  3. COZAAR [Concomitant]
  4. PREDNISONE [Concomitant]

REACTIONS (5)
  - CHEST PAIN [None]
  - GASTROOESOPHAGEAL REFLUX DISEASE [None]
  - MALAISE [None]
  - PRURITUS GENERALISED [None]
  - STOMACH DISCOMFORT [None]
